FAERS Safety Report 8556410 (Version 2)
Quarter: 2012Q4

REPORT INFORMATION
  Report Type: 
  Country: US (occurrence: US)
  Receive Date: 20120510
  Receipt Date: 20120925
  Transmission Date: 20130627
  Serious: Yes (Hospitalization)
  Sender: FDA-Public Use
  Company Number: US-BAYER-2012-045695

PATIENT
  Age: 20 Year
  Sex: Female
  Weight: 52 kg

DRUGS (14)
  1. YAZ [Suspect]
     Indication: MENSTRUATION IRREGULAR
     Dosage: UNK
     Dates: start: 20070813, end: 20080603
  2. YAZ [Suspect]
     Indication: DYSMENORRHOEA
  3. YASMIN [Suspect]
     Indication: MENSTRUATION IRREGULAR
     Dosage: UNK
     Dates: start: 20080630, end: 20080728
  4. OCELLA [Suspect]
     Indication: MENSTRUATION IRREGULAR
     Dosage: UNK
     Dates: start: 20080729, end: 20090903
  5. SULFAMETHOXAZOLE/TRIMETHOPRIM [Concomitant]
     Indication: ACNE
     Dosage: UNK
     Dates: start: 20071220, end: 201204
  6. SULFAMETHOXAZOLE/TRIMETHOPRIM [Concomitant]
     Indication: ACNE
     Dosage: UNK
     Dates: start: 20100601
  7. ALEVE [Concomitant]
     Dosage: UNK
     Dates: start: 201001
  8. BENTYL [Concomitant]
  9. TETRACYCLINE [Concomitant]
  10. BACTRIM [Concomitant]
     Indication: ACNE
  11. LUTERAN [Concomitant]
     Dosage: UNK
     Dates: start: 20100601
  12. DARVOCET-N [Concomitant]
  13. COMPAZINE [Concomitant]
  14. ALLEGRA-D [Concomitant]

REACTIONS (9)
  - Gallbladder disorder [None]
  - Biliary dyskinesia [None]
  - Abdominal pain [None]
  - Injury [None]
  - General physical health deterioration [None]
  - General physical health deterioration [None]
  - Anxiety [None]
  - Pain [None]
  - Emotional distress [None]
